FAERS Safety Report 20938150 (Version 1)
Quarter: 2022Q2

REPORT INFORMATION
  Report Type: Spontaneous
  Country: US (occurrence: US)
  Receive Date: 20220609
  Receipt Date: 20220609
  Transmission Date: 20220721
  Serious: No
  Sender: FDA-Public Use
  Company Number: US-GSKCCFUS-Case-01398710_AE-80585

PATIENT
  Age: 80 Year
  Sex: Female

DRUGS (2)
  1. BREO ELLIPTA [Suspect]
     Active Substance: FLUTICASONE FUROATE\VILANTEROL TRIFENATATE
     Indication: Product used for unknown indication
     Dosage: 1 NCI, QD 100/25
     Route: 055
     Dates: start: 20220520
  2. FLUTICASONE [Concomitant]
     Active Substance: FLUTICASONE
     Indication: Product used for unknown indication
     Dosage: UNK

REACTIONS (3)
  - Hypertension [Not Recovered/Not Resolved]
  - Diplopia [Unknown]
  - Dizziness [Unknown]

NARRATIVE: CASE EVENT DATE: 20220602
